FAERS Safety Report 18101141 (Version 1)
Quarter: 2020Q3

REPORT INFORMATION
  Report Type: Spontaneous
  Country: LT (occurrence: LT)
  Receive Date: 20200801
  Receipt Date: 20200801
  Transmission Date: 20201103
  Serious: Yes (Other)
  Sender: FDA-Public Use
  Company Number: LT-ACCORD-182064

PATIENT
  Age: 67 Year
  Sex: Female

DRUGS (10)
  1. CLOTRIMAZOLE. [Concomitant]
     Active Substance: CLOTRIMAZOLE
     Indication: CRYPTOCOCCAL CUTANEOUS INFECTION
     Dosage: 2 TIMES
     Route: 061
  2. TACROLIMUS. [Suspect]
     Active Substance: TACROLIMUS
     Indication: IMMUNOSUPPRESSANT DRUG THERAPY
  3. DIFLUCORTOLONE VALERATE/ISOCONAZOLE [Concomitant]
     Indication: CRYPTOCOCCAL CUTANEOUS INFECTION
     Dosage: 2 TIMES
     Route: 061
  4. FLUCONAZOLE. [Concomitant]
     Active Substance: FLUCONAZOLE
     Indication: CRYPTOCOCCAL CUTANEOUS INFECTION
     Dosage: 150 MILLIGRAM DAILY, FOR 8 WEEKS
     Route: 048
  5. ITRACONAZOLE. [Suspect]
     Active Substance: ITRACONAZOLE
     Indication: CRYPTOCOCCAL CUTANEOUS INFECTION
     Dosage: 200 MILLIGRAM DAILY, SYSTEMIC
  6. FLUCONAZOLE. [Concomitant]
     Active Substance: FLUCONAZOLE
     Indication: CRYPTOCOCCAL CUTANEOUS INFECTION
     Dosage: 200 MILLIGRAM DAILY, FOR 10 DAYS
     Route: 048
  7. METHYLPREDNISOLONE. [Suspect]
     Active Substance: METHYLPREDNISOLONE
     Indication: IMMUNOSUPPRESSANT DRUG THERAPY
  8. KETOCONAZOLE. [Concomitant]
     Active Substance: KETOCONAZOLE
     Indication: CRYPTOCOCCAL CUTANEOUS INFECTION
     Dosage: WASHING LIQUID 2?3 TIMES
     Route: 061
  9. MYCOPHENOLIC ACID. [Suspect]
     Active Substance: MYCOPHENOLIC ACID
     Indication: IMMUNOSUPPRESSANT DRUG THERAPY
     Dosage: 720 MILLIGRAM DAILY
  10. MYCOPHENOLATE MOFETIL. [Suspect]
     Active Substance: MYCOPHENOLATE MOFETIL
     Indication: IMMUNOSUPPRESSANT DRUG THERAPY

REACTIONS (4)
  - Cryptococcal cutaneous infection [Recovered/Resolved]
  - Gait disturbance [Unknown]
  - Muscular weakness [Unknown]
  - Swelling face [Unknown]
